FAERS Safety Report 5244253-9 (Version None)
Quarter: 2007Q1

REPORT INFORMATION
  Report Type: 
  Country: None (occurrence: None)
  Receive Date: 20070222
  Receipt Date: 20070213
  Transmission Date: 20070707
  Serious: Yes (Other)
  Sender: FDA-Public Use
  Company Number: PHEH2006US03010

PATIENT
  Age: 62 Year
  Sex: Male

DRUGS (5)
  1. ZOMETA [Suspect]
     Indication: MULTIPLE MYELOMA
     Dosage: UNK, QMO
     Dates: start: 20030801
  2. ZOMETA [Suspect]
     Dosage: UNK, QMO
     Dates: start: 20030801
  3. VITAMIN CAP [Concomitant]
     Dosage: 1 UNK, QD
  4. TUMS [Concomitant]
     Dosage: 1 UNK, QD
  5. ACETYLSALICYLIC ACID SRT [Concomitant]
     Dosage: 325 MG, QD

REACTIONS (9)
  - BONE DISORDER [None]
  - DENTAL TREATMENT [None]
  - EATING DISORDER [None]
  - GINGIVAL RECESSION [None]
  - ORAL SOFT TISSUE DISORDER [None]
  - OSTEONECROSIS [None]
  - TOOTH DISORDER [None]
  - TOOTH LOSS [None]
  - TOOTHACHE [None]
